FAERS Safety Report 23637863 (Version 5)
Quarter: 2024Q3

REPORT INFORMATION
  Report Type: Spontaneous
  Country: US (occurrence: US)
  Receive Date: 20240315
  Receipt Date: 20240702
  Transmission Date: 20241017
  Serious: No
  Sender: PFIZER
  Company Number: US-PFIZER INC-202200468999

PATIENT
  Age: 76 Year
  Sex: Female

DRUGS (2)
  1. VIZIMPRO [Suspect]
     Active Substance: DACOMITINIB
     Indication: Lung adenocarcinoma
     Dosage: TAKE ONE TABLET ONCE DAILY
     Route: 048
     Dates: start: 201905
  2. VIZIMPRO [Suspect]
     Active Substance: DACOMITINIB
     Dosage: 45 MG, 1X/DAY
     Route: 048

REACTIONS (1)
  - Nasopharyngitis [Unknown]
